FAERS Safety Report 6608425-0 (Version None)
Quarter: 2010Q1

REPORT INFORMATION
  Report Type: 
  Country: None (occurrence: None)
  Receive Date: 20100222
  Receipt Date: 20100205
  Transmission Date: 20100710
  Serious: Yes (Death)
  Sender: FDA-Public Use
  Company Number: A-US2008-22301

PATIENT
  Age: 68 Year
  Sex: Male

DRUGS (2)
  1. TRACLEER [Suspect]
     Indication: PULMONARY ARTERIAL HYPERTENSION
     Dosage: ORAL
     Route: 048
     Dates: start: 20080722
  2. ALBUTEROL (SALBUTAMOL SULFATE) [Concomitant]

REACTIONS (4)
  - CARDIAC ARREST [None]
  - HERPES ZOSTER [None]
  - HYPERKALAEMIA [None]
  - REFUSAL OF TREATMENT BY PATIENT [None]
